FAERS Safety Report 16069000 (Version 1)
Quarter: 2019Q1

REPORT INFORMATION
  Report Type: Spontaneous
  Country: FR (occurrence: FR)
  Receive Date: 20190313
  Receipt Date: 20190313
  Transmission Date: 20190418
  Serious: Yes (Disabling)
  Sender: FDA-Public Use
  Company Number: FR-GILEAD-2019-0394326

PATIENT
  Age: 53 Year
  Sex: Male
  Weight: 130 kg

DRUGS (1)
  1. BIKTARVY [Suspect]
     Active Substance: BICTEGRAVIR SODIUM\EMTRICITABINE\TENOFOVIR ALAFENAMIDE FUMARATE
     Indication: HIV INFECTION
     Dosage: UNK
     Route: 048
     Dates: start: 20190129, end: 201902

REACTIONS (6)
  - Palpitations [Recovered/Resolved]
  - Fatigue [Recovered/Resolved]
  - Housebound [Recovered/Resolved]
  - Hypersomnia [Recovered/Resolved]
  - Thinking abnormal [Recovered/Resolved]
  - Sensory disturbance [Recovered/Resolved]

NARRATIVE: CASE EVENT DATE: 201902
